FAERS Safety Report 8428290-9 (Version None)
Quarter: 2012Q2

REPORT INFORMATION
  Report Type: 
  Country: None (occurrence: None)
  Receive Date: 20120611
  Receipt Date: 20120604
  Transmission Date: 20120825
  Serious: Yes (Hospitalization)
  Sender: FDA-Public Use
  Company Number: US-MERCK-1203USA02009

PATIENT
  Age: 76 Year
  Sex: Female

DRUGS (8)
  1. FOSAMAX [Suspect]
     Route: 048
     Dates: start: 20050301, end: 20071201
  2. FOSAMAX [Suspect]
     Route: 048
     Dates: start: 20080201, end: 20100401
  3. ALENDRONATE SODIUM [Suspect]
     Indication: OSTEOPENIA
     Route: 048
     Dates: start: 20080201, end: 20100101
  4. ALENDRONATE SODIUM [Suspect]
     Indication: BACK PAIN
     Route: 048
     Dates: start: 20080201, end: 20100101
  5. FOSAMAX [Suspect]
     Indication: OSTEOPENIA
     Route: 048
     Dates: start: 20020101, end: 20050201
  6. FOSAMAX [Suspect]
     Indication: BACK PAIN
     Route: 048
     Dates: start: 20020101, end: 20050201
  7. FOSAMAX [Suspect]
     Route: 048
     Dates: start: 20080201, end: 20100401
  8. FOSAMAX [Suspect]
     Route: 048
     Dates: start: 20050301, end: 20071201

REACTIONS (6)
  - FEMUR FRACTURE [None]
  - LOWER LIMB FRACTURE [None]
  - TOOTH DISORDER [None]
  - MUSCULOSKELETAL DISORDER [None]
  - ARTHRITIS [None]
  - OFF LABEL USE [None]
